FAERS Safety Report 22518095 (Version 2)
Quarter: 2023Q2

REPORT INFORMATION
  Report Type: Spontaneous
  Country: US (occurrence: US)
  Receive Date: 20230605
  Receipt Date: 20230613
  Transmission Date: 20230722
  Serious: No
  Sender: FDA-Public Use
  Company Number: US-GLAXOSMITHKLINE-USCH2023026478

PATIENT
  Age: 61 Year
  Sex: Male

DRUGS (1)
  1. GLYCERIN\SORBITOL [Suspect]
     Active Substance: GLYCERIN\SORBITOL
     Indication: Product used for unknown indication
     Dosage: UNK
     Dates: start: 2023, end: 20230531

REACTIONS (3)
  - Aphthous ulcer [Unknown]
  - Cheilitis [Unknown]
  - Thermal burn [Unknown]

NARRATIVE: CASE EVENT DATE: 20230101
